FAERS Safety Report 6039396-6 (Version None)
Quarter: 2009Q1

REPORT INFORMATION
  Report Type: 
  Country: None (occurrence: None)
  Receive Date: 20090115
  Receipt Date: 20090107
  Transmission Date: 20090719
  Serious: Yes (Other)
  Sender: FDA-Public Use
  Company Number: US-MERCK-0901USA01495

PATIENT

DRUGS (2)
  1. DECADRON [Suspect]
     Indication: AMYLOIDOSIS
     Route: 048
  2. LENALIDOMIDE [Suspect]
     Indication: AMYLOIDOSIS
     Route: 065

REACTIONS (1)
  - STEVENS-JOHNSON SYNDROME [None]
